FAERS Safety Report 6265318-9 (Version None)
Quarter: 2009Q3

REPORT INFORMATION
  Report Type: 
  Country: None (occurrence: None)
  Receive Date: 20090713
  Receipt Date: 20090630
  Transmission Date: 20100115
  Serious: Yes (Other)
  Sender: FDA-Public Use
  Company Number: PL-ELI_LILLY_AND_COMPANY-PL200907000498

PATIENT

DRUGS (2)
  1. GEMCITABINE HCL [Suspect]
     Indication: BLADDER CANCER
     Dosage: 1000 MG/M2, DAY 1, 8 AND 15 EVERY 28 DAYS
     Route: 065
  2. CISPLATIN [Concomitant]
     Indication: BLADDER CANCER
     Dosage: 70 MG/M2, OTHER( ON DAY 2 EVERY 28 DAYS)
     Route: 050

REACTIONS (3)
  - GASTROINTESTINAL TOXICITY [None]
  - LEUKOPENIA [None]
  - NEUTROPENIA [None]
